FAERS Safety Report 22088971 (Version 5)
Quarter: 2023Q2

REPORT INFORMATION
  Report Type: Spontaneous
  Country: FR (occurrence: FR)
  Receive Date: 20230313
  Receipt Date: 20230612
  Transmission Date: 20230722
  Serious: Yes (Other)
  Sender: FDA-Public Use
  Company Number: None

PATIENT
  Age: 42 Year
  Sex: Female
  Weight: 70 kg

DRUGS (10)
  1. CANDESARTAN [Suspect]
     Active Substance: CANDESARTAN
     Indication: Lupus nephritis
     Dosage: 12 MILLIGRAM, QD
     Route: 065
     Dates: end: 20230110
  2. CANDESARTAN [Suspect]
     Active Substance: CANDESARTAN
     Dosage: 16 MILLIGRAM, QD
     Route: 048
     Dates: start: 201606, end: 20230110
  3. PLAQUENIL [Suspect]
     Active Substance: HYDROXYCHLOROQUINE SULFATE
     Indication: SLE arthritis
     Dosage: 200 MILLIGRAM, MORNING AND EVENING
     Route: 048
     Dates: start: 201902, end: 20230110
  4. PREDNISONE [Concomitant]
     Active Substance: PREDNISONE
     Indication: Arthralgia
     Dosage: 5 MILLIGRAM, QD (DAILY)
     Route: 048
     Dates: start: 201902
  5. COLECALCIFEROL;SODIUM FLUORIDE [Concomitant]
     Dosage: UNK
     Route: 065
  6. CHOLECALCIFEROL [Concomitant]
     Active Substance: CHOLECALCIFEROL
     Dosage: ORAL SOLUTION IN AMPOULE
     Route: 065
  7. CALCIFEDIOL [Concomitant]
     Active Substance: CALCIFEDIOL
     Dosage: 15 MG/100 ML, SOLUTION IN DROPS
     Route: 065
  8. CHOLECALCIFEROL [Concomitant]
     Active Substance: CHOLECALCIFEROL
     Dosage: ORAL SOLUTION IN AMPOULE
     Route: 065
  9. PERINDOPRIL [Concomitant]
     Active Substance: PERINDOPRIL
     Indication: Proteinuria
     Dosage: 5 MILLIGRAM
     Route: 065
     Dates: start: 201512, end: 201606
  10. PERINDOPRIL [Concomitant]
     Active Substance: PERINDOPRIL
     Dosage: 2.5 MILLIGRAM
     Route: 065
     Dates: start: 201512

REACTIONS (4)
  - Anaemia macrocytic [Not Recovered/Not Resolved]
  - Condition aggravated [Not Recovered/Not Resolved]
  - Anaemia [Not Recovered/Not Resolved]
  - Product use in unapproved indication [Not Recovered/Not Resolved]

NARRATIVE: CASE EVENT DATE: 20160601
